FAERS Safety Report 13552760 (Version 1)
Quarter: 2017Q2

REPORT INFORMATION
  Report Type: Spontaneous
  Country: US (occurrence: US)
  Receive Date: 20170517
  Receipt Date: 20170517
  Transmission Date: 20170830
  Serious: No
  Sender: FDA-Public Use
  Company Number: US-TEVA-769565ACC

PATIENT
  Age: 31 Year
  Sex: Female
  Weight: 63.56 kg

DRUGS (5)
  1. AFTERA [Suspect]
     Active Substance: LEVONORGESTREL
     Indication: POST COITAL CONTRACEPTION
     Dates: start: 20170501, end: 20170501
  2. AFTERA [Suspect]
     Active Substance: LEVONORGESTREL
     Dates: start: 20170505, end: 20170505
  3. AFTERA [Suspect]
     Active Substance: LEVONORGESTREL
     Dates: start: 20170503, end: 20170503
  4. AFTERA [Suspect]
     Active Substance: LEVONORGESTREL
     Dates: start: 20170504, end: 20170504
  5. AFTERA [Suspect]
     Active Substance: LEVONORGESTREL
     Dates: start: 20170502, end: 20170502

REACTIONS (2)
  - Menstruation delayed [Not Recovered/Not Resolved]
  - Intentional product misuse [Recovered/Resolved]

NARRATIVE: CASE EVENT DATE: 2017
